FAERS Safety Report 4356135-5 (Version None)
Quarter: 2004Q2

REPORT INFORMATION
  Report Type: 
  Country: None (occurrence: None)
  Receive Date: 20040511
  Receipt Date: 20040324
  Transmission Date: 20050107
  Serious: Yes (Death)
  Sender: FDA-Public Use
  Company Number: PHRM2004FR01336

PATIENT
  Age: 18 Year
  Sex: Female

DRUGS (2)
  1. NEORAL [Suspect]
     Indication: RENAL TRANSPLANT
     Dosage: 440 MG DAILY
     Route: 048
     Dates: start: 20040130, end: 20040131
  2. SIMULECT [Suspect]
     Indication: RENAL TRANSPLANT
     Dosage: 20 MG/DAY
     Route: 042
     Dates: start: 20040130, end: 20040131

REACTIONS (9)
  - ACUTE PULMONARY OEDEMA [None]
  - AGITATION [None]
  - ARRHYTHMOGENIC RIGHT VENTRICULAR DYSPLASIA [None]
  - CARDIAC MASSAGE [None]
  - CARDIO-RESPIRATORY ARREST [None]
  - CYANOSIS [None]
  - PERICARDITIS [None]
  - PHARYNGEAL HAEMORRHAGE [None]
  - PULMONARY EMBOLISM [None]
